FAERS Safety Report 17623544 (Version 1)
Quarter: 2020Q2

REPORT INFORMATION
  Report Type: Spontaneous
  Country: US (occurrence: US)
  Receive Date: 20200403
  Receipt Date: 20200403
  Transmission Date: 20200713
  Serious: No
  Sender: FDA-Public Use
  Company Number: US-ASTRAZENECA-2020SE42815

PATIENT
  Age: 13691 Day
  Sex: Female

DRUGS (16)
  1. COLACE CLEAR [Concomitant]
     Active Substance: DOCUSATE SODIUM
  2. LISINOPRIL. [Suspect]
     Active Substance: LISINOPRIL
     Indication: CHRONIC LYMPHOCYTIC LEUKAEMIA
     Route: 048
     Dates: start: 20200219
  3. VITAMIN E [Concomitant]
     Active Substance: .ALPHA.-TOCOPHEROL
  4. PERCOCET [Concomitant]
     Active Substance: ACETAMINOPHEN\OXYCODONE HYDROCHLORIDE
  5. POTTASSIUM CHLORIDE [Concomitant]
  6. VITAMIN B12 [Concomitant]
     Active Substance: CYANOCOBALAMIN
  7. ONDANSETRON [Concomitant]
     Active Substance: ONDANSETRON
  8. BACTRIM DS [Concomitant]
     Active Substance: SULFAMETHOXAZOLE\TRIMETHOPRIM
  9. TRIAMTERENE. [Concomitant]
     Active Substance: TRIAMTERENE
  10. ACYCLOVIR. [Concomitant]
     Active Substance: ACYCLOVIR
  11. IMBRUVICA [Suspect]
     Active Substance: IBRUTINIB
     Route: 065
  12. ALBUTEROL. [Concomitant]
     Active Substance: ALBUTEROL
  13. SYMBICORT [Concomitant]
     Active Substance: BUDESONIDE\FORMOTEROL FUMARATE DIHYDRATE
  14. SYMBICORT [Suspect]
     Active Substance: BUDESONIDE\FORMOTEROL FUMARATE DIHYDRATE
     Route: 055
  15. MONTELUKAST [Concomitant]
     Active Substance: MONTELUKAST SODIUM
  16. CYMBALTA [Concomitant]
     Active Substance: DULOXETINE HYDROCHLORIDE

REACTIONS (2)
  - Diarrhoea [Unknown]
  - Lacrimation increased [Unknown]

NARRATIVE: CASE EVENT DATE: 20200309
